FAERS Safety Report 17217410 (Version 1)
Quarter: 2019Q4

REPORT INFORMATION
  Report Type: Spontaneous
  Country: FR (occurrence: FR)
  Receive Date: 20191231
  Receipt Date: 20191231
  Transmission Date: 20200122
  Serious: Yes (Hospitalization)
  Sender: FDA-Public Use
  Company Number: FR-ZYDUS-045084

PATIENT
  Age: 60 Year
  Sex: Male
  Weight: 93.5 kg

DRUGS (8)
  1. ROPIVACAINE. [Suspect]
     Active Substance: ROPIVACAINE HYDROCHLORIDE
     Indication: NEURALGIA
     Dosage: 19,2MG/JR
     Route: 037
     Dates: start: 201902
  2. NEBIVOLOL. [Concomitant]
     Active Substance: NEBIVOLOL
     Indication: PRODUCT USED FOR UNKNOWN INDICATION
     Route: 048
     Dates: start: 201911
  3. MORPHINE [Suspect]
     Active Substance: MORPHINE
     Indication: NEURALGIA
     Dosage: 9,12MG/JR
     Route: 037
     Dates: start: 201902
  4. BACLOFENE [Suspect]
     Active Substance: BACLOFEN
     Indication: NEURALGIA
     Route: 048
     Dates: end: 20191121
  5. ZICONOTIDE [Suspect]
     Active Substance: ZICONOTIDE
     Indication: NEURALGIA
     Dosage: 2.64
     Route: 037
     Dates: start: 201902
  6. PERINDOPRIL [Concomitant]
     Active Substance: PERINDOPRIL
     Indication: PRODUCT USED FOR UNKNOWN INDICATION
     Route: 048
     Dates: start: 201911
  7. GABAPENTIN. [Suspect]
     Active Substance: GABAPENTIN
     Indication: NEURALGIA
     Route: 048
     Dates: end: 20191121
  8. DULOXETINE. [Suspect]
     Active Substance: DULOXETINE
     Indication: NEURALGIA
     Route: 048
     Dates: end: 20191121

REACTIONS (2)
  - Disturbance in attention [Recovered/Resolved]
  - Confusional state [Recovered/Resolved]

NARRATIVE: CASE EVENT DATE: 20191120
